FAERS Safety Report 9238467 (Version 2)
Quarter: 2013Q2

REPORT INFORMATION
  Report Type: Spontaneous
  Country: CA (occurrence: CA)
  Receive Date: 20130418
  Receipt Date: 20130419
  Transmission Date: 20140414
  Serious: Yes (Other)
  Sender: FDA-Public Use
  Company Number: PHHY2013CA037195

PATIENT
  Sex: Male

DRUGS (1)
  1. TAMSULOSIN SANDOZ [Suspect]

REACTIONS (1)
  - Chromaturia [Unknown]
